FAERS Safety Report 7637036-3 (Version None)
Quarter: 2011Q3

REPORT INFORMATION
  Report Type: 
  Country: None (occurrence: None)
  Receive Date: 20110726
  Receipt Date: 20110717
  Transmission Date: 20111222
  Serious: Yes (Hospitalization)
  Sender: FDA-Public Use
  Company Number: IL-GENZYME-CAMP-1001729

PATIENT
  Sex: Male
  Weight: 87 kg

DRUGS (3)
  1. IBUPROFEN [Concomitant]
     Indication: INFLUENZA
     Dosage: 200 MG, PRN
     Route: 048
     Dates: start: 20110115
  2. ALEMTUZUMAB [Suspect]
     Indication: MULTIPLE SCLEROSIS
     Dosage: 12 MG, QDX5
     Route: 042
     Dates: start: 20090419, end: 20090423
  3. ALEMTUZUMAB [Suspect]
     Dosage: 12 MG, QDX3
     Route: 042
     Dates: start: 20100426, end: 20100428

REACTIONS (1)
  - THYROIDITIS [None]
